FAERS Safety Report 6207776-1 (Version None)
Quarter: 2009Q2

REPORT INFORMATION
  Report Type: 
  Country: None (occurrence: None)
  Receive Date: 20090522
  Receipt Date: 20090512
  Transmission Date: 20091009
  Serious: Yes (Hospitalization)
  Sender: FDA-Public Use
  Company Number: 1000003156

PATIENT
  Age: 80 Year
  Sex: Female

DRUGS (4)
  1. MEMANTINE HCL [Suspect]
     Indication: DEMENTIA ALZHEIMER'S TYPE
     Dosage: 20 MG (20 MG, 1 IN 1 D), ORAL
     Route: 048
     Dates: start: 20061004, end: 20081121
  2. SENNOSIDE [Concomitant]
  3. SULFADIAZINE SILVER [Concomitant]
  4. SODIUM PICOSULFATE [Concomitant]

REACTIONS (12)
  - ANAEMIA [None]
  - BLOOD ALBUMIN DECREASED [None]
  - BLOOD CALCIUM DECREASED [None]
  - BLOOD IRON DECREASED [None]
  - BLOOD POTASSIUM DECREASED [None]
  - DECUBITUS ULCER [None]
  - FLUID INTAKE REDUCED [None]
  - HYPOPHAGIA [None]
  - IRON BINDING CAPACITY UNSATURATED DECREASED [None]
  - MALNUTRITION [None]
  - PROTEIN TOTAL DECREASED [None]
  - URINARY TRACT INFECTION [None]
